FAERS Safety Report 14569443 (Version 2)
Quarter: 2018Q1

REPORT INFORMATION
  Report Type: Spontaneous
  Country: FR (occurrence: FR)
  Receive Date: 20180223
  Receipt Date: 20180322
  Transmission Date: 20180509
  Serious: Yes (Hospitalization, Other)
  Sender: FDA-Public Use
  Company Number: FR-CONCORDIA PHARMACEUTICALS INC.-E2B_00010023

PATIENT
  Age: 67 Year
  Sex: Female

DRUGS (15)
  1. METFORMIN [Concomitant]
     Active Substance: METFORMIN HYDROCHLORIDE
     Indication: DIABETES MELLITUS
     Route: 065
  2. NICARDIPINE [Interacting]
     Active Substance: NICARDIPINE
     Indication: HYPERTENSION
     Route: 065
  3. HYDROCHLOROTHIAZIDE. [Concomitant]
     Active Substance: HYDROCHLOROTHIAZIDE
     Route: 065
  4. NICARDIPINE [Interacting]
     Active Substance: NICARDIPINE
     Route: 065
  5. IRBESARTAN. [Concomitant]
     Active Substance: IRBESARTAN
     Route: 065
  6. URAPIDIL [Concomitant]
     Active Substance: URAPIDIL
     Route: 065
  7. ALPRAZOLAM. [Concomitant]
     Active Substance: ALPRAZOLAM
     Route: 065
  8. ESOMEPRAZOLE [Concomitant]
     Active Substance: ESOMEPRAZOLE
     Route: 065
  9. ALFUZOSIN [Suspect]
     Active Substance: ALFUZOSIN
     Indication: ARTHRITIS BACTERIAL
     Route: 058
  10. ATORVASTATIN [Concomitant]
     Active Substance: ATORVASTATIN
     Route: 065
  11. RIFAMPICIN [Interacting]
     Active Substance: RIFAMPIN
     Indication: ARTHRITIS BACTERIAL
     Route: 048
  12. ASPIRIN. [Concomitant]
     Active Substance: ASPIRIN
     Route: 065
  13. TEICOPLANIN [Concomitant]
     Active Substance: TEICOPLANIN
     Indication: ARTHRITIS BACTERIAL
  14. ALFUZOSIN [Suspect]
     Active Substance: ALFUZOSIN
     Indication: HYPERTENSION
     Route: 065
  15. ISRADIPINE. [Concomitant]
     Active Substance: ISRADIPINE

REACTIONS (7)
  - Renal impairment [Unknown]
  - Drug ineffective [Unknown]
  - Hypertension [Recovering/Resolving]
  - Posterior reversible encephalopathy syndrome [Unknown]
  - Status epilepticus [Unknown]
  - Off label use [Unknown]
  - Drug interaction [Unknown]
